FAERS Safety Report 4445486-1 (Version None)
Quarter: 2004Q3

REPORT INFORMATION
  Report Type: 
  Country: None (occurrence: None)
  Receive Date: 20040811
  Receipt Date: 20031031
  Transmission Date: 20050211
  Serious: Yes (Other)
  Sender: FDA-Public Use
  Company Number: 233708

PATIENT
  Age: 24 Year
  Sex: Male
  Weight: 64.4 kg

DRUGS (1)
  1. NOVOLIN L (INSULIN HUMAN) SUSPENSION FOR INJECTION, 100IU/ML [Suspect]
     Indication: DIABETES MELLITUS INSULIN-DEPENDENT
     Dosage: SUBCUTANEOUS
     Route: 058
     Dates: start: 20000101, end: 20000101

REACTIONS (1)
  - BLOOD GLUCOSE DECREASED [None]
